FAERS Safety Report 9688357 (Version 2)
Quarter: 2013Q4

REPORT INFORMATION
  Report Type: Report from Study
  Country: NL (occurrence: NL)
  Receive Date: 20131114
  Receipt Date: 20131114
  Transmission Date: 20140711
  Serious: Yes (Hospitalization, Disabling, Other)
  Sender: FDA-Public Use
  Company Number: PHHO2012NL015031

PATIENT
  Sex: 0

DRUGS (21)
  1. MYFORTIC [Suspect]
     Indication: RENAL TRANSPLANT
     Dosage: 540 MG, BID
     Route: 048
     Dates: start: 20120106
  2. CERTICAN [Suspect]
     Indication: RENAL TRANSPLANT
     Dosage: 3.75 MG, QD
     Route: 048
     Dates: start: 20120328, end: 20120720
  3. CERTICAN [Suspect]
     Dosage: 3 MG, BID
     Route: 048
     Dates: start: 20120830, end: 20121121
  4. PROGRAF [Suspect]
     Indication: RENAL TRANSPLANT
     Dosage: UNK
     Dates: start: 20121121
  5. STEROIDS NOS [Concomitant]
     Indication: RENAL TRANSPLANT
     Dosage: 5 MG, QD
     Dates: start: 20120106
  6. OMEPRAZOLE [Concomitant]
  7. COLECALCIFEROL [Concomitant]
  8. FLUTICASONE [Concomitant]
  9. TRAMAL [Concomitant]
  10. LISINOPRIL [Concomitant]
  11. NIFEDIPINE [Concomitant]
  12. TIOTROPIUM [Concomitant]
  13. SALBUTAMOL [Concomitant]
  14. AUGMENTIN [Concomitant]
  15. PREDNISOLONE [Concomitant]
  16. CLINDAMYCIN [Concomitant]
  17. INSULIN ASPART [Concomitant]
  18. INSULIN DETEMIR [Concomitant]
  19. CIPROFLOXACIN [Concomitant]
  20. BECLOMETASONE [Concomitant]
  21. BISOPROLOL [Concomitant]

REACTIONS (4)
  - Impaired healing [Recovered/Resolved]
  - Sepsis [Recovered/Resolved]
  - Osteomyelitis [Recovered/Resolved with Sequelae]
  - Pyrexia [Recovered/Resolved]
